FAERS Safety Report 19525931 (Version 1)
Quarter: 2021Q3

REPORT INFORMATION
  Report Type: Spontaneous
  Country: BR (occurrence: BR)
  Receive Date: 20210713
  Receipt Date: 20210713
  Transmission Date: 20211014
  Serious: Yes (Hospitalization, Other)
  Sender: FDA-Public Use
  Company Number: BR-NOVOPROD-826572

PATIENT
  Age: 24 Year
  Sex: Male
  Weight: 47 kg

DRUGS (4)
  1. INSULATARD HM [Suspect]
     Active Substance: INSULIN HUMAN
     Dosage: 24 (08+08+08)
     Route: 065
  2. INSULATARD HM [Suspect]
     Active Substance: INSULIN HUMAN
     Indication: TYPE 1 DIABETES MELLITUS
     Dosage: 38 (20+08+10)
     Route: 065
  3. PURAN [Concomitant]
     Active Substance: LEVOTHYROXINE SODIUM
     Dosage: 37.5 MCG
  4. INSULATARD HM [Suspect]
     Active Substance: INSULIN HUMAN
     Dosage: 12 ( 4+4+4)
     Route: 065

REACTIONS (10)
  - Nephropathy [Unknown]
  - Weight decreased [Unknown]
  - Hyperglycaemia [Unknown]
  - Malnutrition [Unknown]
  - Diabetes mellitus inadequate control [Unknown]
  - Diabetic retinopathy [Unknown]
  - Treatment noncompliance [Unknown]
  - Diabetic ketoacidosis [Unknown]
  - Neuropathy peripheral [Unknown]
  - Hypoglycaemia [Unknown]
